FAERS Safety Report 13448413 (Version 1)
Quarter: 2017Q2

REPORT INFORMATION
  Report Type: Report from Study
  Country: US (occurrence: US)
  Receive Date: 20170417
  Receipt Date: 20170417
  Transmission Date: 20170830
  Serious: Yes (Death)
  Sender: FDA-Public Use
  Company Number: US-IPCA LABORATORIES LIMITED-IPC201704-000458

PATIENT

DRUGS (2)
  1. LESINURAD [Suspect]
     Active Substance: LESINURAD
     Indication: GOUT
  2. ALLOPURINOL. [Suspect]
     Active Substance: ALLOPURINOL
     Indication: GOUT

REACTIONS (1)
  - Cardiac arrest [Fatal]
